APPROVED DRUG PRODUCT: PRAVASTATIN SODIUM
Active Ingredient: PRAVASTATIN SODIUM
Strength: 20MG
Dosage Form/Route: TABLET;ORAL
Application: A077987 | Product #002 | TE Code: AB
Applicant: GLENMARK PHARMACEUTICALS LTD
Approved: May 11, 2007 | RLD: No | RS: No | Type: RX